FAERS Safety Report 13247244 (Version 1)
Quarter: 2017Q1

REPORT INFORMATION
  Report Type: Spontaneous
  Country: US (occurrence: US)
  Receive Date: 20170217
  Receipt Date: 20170217
  Transmission Date: 20170428
  Serious: No
  Sender: FDA-Public Use
  Company Number: US-PERRIGO-16US020606

PATIENT
  Age: 63 Year
  Sex: Female
  Weight: 63.49 kg

DRUGS (1)
  1. CETIRIZINE HYDROCHLORIDE. [Suspect]
     Active Substance: CETIRIZINE HYDROCHLORIDE
     Indication: HYPERSENSITIVITY
     Dosage: 20 TO 30 MG, QD
     Route: 048
     Dates: start: 2013, end: 20160922

REACTIONS (4)
  - Vomiting [Recovered/Resolved]
  - Overdose [Recovered/Resolved]
  - Malaise [Recovered/Resolved]
  - Dependence [Unknown]

NARRATIVE: CASE EVENT DATE: 2013
